FAERS Safety Report 12768773 (Version 4)
Quarter: 2017Q2

REPORT INFORMATION
  Report Type: Spontaneous
  Country: AU (occurrence: AU)
  Receive Date: 20160921
  Receipt Date: 20170410
  Transmission Date: 20170830
  Serious: Yes (Hospitalization, Other)
  Sender: FDA-Public Use
  Company Number: AU-ALEXION-A201606984

PATIENT
  Age: 43 Year
  Sex: Female

DRUGS (2)
  1. SOLIRIS [Suspect]
     Active Substance: ECULIZUMAB
     Indication: HAEMOLYTIC URAEMIC SYNDROME
     Dosage: 900 MG, QW
     Route: 042
     Dates: start: 20160909
  2. SOLIRIS [Suspect]
     Active Substance: ECULIZUMAB
     Dosage: 900 MG, Q2W
     Route: 042
     Dates: start: 20161130

REACTIONS (16)
  - Blood creatinine increased [Not Recovered/Not Resolved]
  - Rhinovirus infection [Unknown]
  - Cardiac function test abnormal [Recovered/Resolved]
  - Pulmonary function test abnormal [Recovered/Resolved]
  - Lower respiratory tract infection [Unknown]
  - Enterovirus infection [Unknown]
  - Condition aggravated [Recovered/Resolved]
  - Pulmonary hypertension [Recovering/Resolving]
  - Platelet count decreased [Recovered/Resolved]
  - Blood lactate dehydrogenase increased [Recovered/Resolved]
  - Thrombotic microangiopathy [Not Recovered/Not Resolved]
  - Mitral valve incompetence [Recovering/Resolving]
  - Cystitis haemorrhagic [Recovered/Resolved]
  - Haemolytic uraemic syndrome [Unknown]
  - Drug ineffective [Unknown]
  - Renal impairment [Recovering/Resolving]

NARRATIVE: CASE EVENT DATE: 20160914
